FAERS Safety Report 9266923 (Version 7)
Quarter: 2013Q2

REPORT INFORMATION
  Report Type: Spontaneous
  Country: TW (occurrence: TW)
  Receive Date: 20130502
  Receipt Date: 20130606
  Transmission Date: 20140414
  Serious: Yes (Other)
  Sender: FDA-Public Use
  Company Number: TW-ROCHE-1218377

PATIENT
  Age: 53 Year
  Sex: Male

DRUGS (2)
  1. TAMIFLU [Suspect]
     Indication: INFLUENZA
     Route: 065
     Dates: start: 20130416, end: 201304
  2. TAMIFLU [Suspect]
     Route: 065
     Dates: start: 20130421, end: 20130507

REACTIONS (5)
  - Disease progression [Recovering/Resolving]
  - Lung infiltration [Recovering/Resolving]
  - Respiratory failure [Recovering/Resolving]
  - Renal impairment [Recovering/Resolving]
  - Weight decreased [Unknown]
